FAERS Safety Report 4746273-7 (Version None)
Quarter: 2005Q3

REPORT INFORMATION
  Report Type: 
  Country: None (occurrence: None)
  Receive Date: 20050816
  Receipt Date: 20050722
  Transmission Date: 20060218
  Serious: Yes (Death)
  Sender: FDA-Public Use
  Company Number: 0507-330

PATIENT
  Age: 1 Hour
  Sex: Male
  Weight: 0.637 kg

DRUGS (2)
  1. CUROSURF [Suspect]
     Indication: NEONATAL RESPIRATORY DISTRESS SYNDROME
  2. BUNK [Concomitant]

REACTIONS (2)
  - NEONATAL DISORDER [None]
  - PULMONARY HAEMORRHAGE [None]
